FAERS Safety Report 5789037-8 (Version None)
Quarter: 2008Q2

REPORT INFORMATION
  Report Type: 
  Country: None (occurrence: None)
  Receive Date: 20080626
  Receipt Date: 20080624
  Transmission Date: 20081010
  Serious: Yes (Other)
  Sender: FDA-Public Use
  Company Number: B0485677A

PATIENT
  Age: 30 Year
  Sex: Male

DRUGS (5)
  1. PAXIL [Suspect]
     Indication: DYSTHYMIC DISORDER
     Route: 048
     Dates: start: 20050907
  2. SOLANAX [Concomitant]
     Route: 048
     Dates: start: 20070824
  3. DESYREL [Concomitant]
     Dosage: 25MG PER DAY
     Route: 048
     Dates: start: 20061030
  4. MEILAX [Concomitant]
     Dosage: 1MG PER DAY
     Route: 048
     Dates: start: 20060508
  5. ZOLOFT [Concomitant]
     Route: 048
     Dates: start: 20070707

REACTIONS (3)
  - AGGRESSION [None]
  - IDIOSYNCRATIC ALCOHOL INTOXICATION [None]
  - PHYSICAL ASSAULT [None]
